FAERS Safety Report 6632269-7 (Version None)
Quarter: 2010Q1

REPORT INFORMATION
  Report Type: 
  Country: None (occurrence: None)
  Receive Date: 20100312
  Receipt Date: 20100305
  Transmission Date: 20100710
  Serious: Yes (Death, Life-Threatening, Hospitalization)
  Sender: FDA-Public Use
  Company Number: DE-AMGEN-UK378121

PATIENT
  Age: 51 Year
  Sex: Female
  Weight: 77 kg

DRUGS (11)
  1. NEULASTA [Suspect]
     Indication: CHEMOTHERAPY
     Route: 058
     Dates: start: 20090801, end: 20091114
  2. DOCETAXEL [Suspect]
     Route: 041
     Dates: start: 20090731, end: 20091113
  3. EPIRUBICIN [Suspect]
     Route: 041
     Dates: start: 20090731, end: 20091113
  4. CYCLOPHOSPHAMIDE [Suspect]
     Route: 041
     Dates: start: 20090731, end: 20091113
  5. GRANISETRON [Concomitant]
     Dates: start: 20090731
  6. FAUSTAN [Concomitant]
     Route: 048
     Dates: start: 20090731
  7. CLEMASTINE FUMARATE [Concomitant]
     Route: 042
     Dates: start: 20090731
  8. CIMETIDINE [Concomitant]
     Route: 042
     Dates: start: 20090731
  9. UROMITEXAN [Concomitant]
     Dates: start: 20090731
  10. DEXAMETHASONE [Concomitant]
     Dates: start: 20090731
  11. MCP-RATIOPHARM [Concomitant]
     Dates: start: 20090803

REACTIONS (3)
  - NEUTROPENIA [None]
  - PNEUMONIA [None]
  - SEPSIS [None]
